FAERS Safety Report 24652483 (Version 3)
Quarter: 2024Q4

REPORT INFORMATION
  Report Type: Report from Study
  Country: CO (occurrence: CO)
  Receive Date: 20241122
  Receipt Date: 20241202
  Transmission Date: 20250114
  Serious: Yes (Life-Threatening, Hospitalization)
  Sender: NOVARTIS
  Company Number: CO-002147023-NVSC2024CO223359

PATIENT
  Sex: Female
  Weight: 64 kg

DRUGS (6)
  1. TASIGNA [Suspect]
     Active Substance: NILOTINIB
     Indication: Philadelphia positive chronic myeloid leukaemia
     Dosage: 300 MG, BID
     Route: 048
     Dates: start: 20240923
  2. TASIGNA [Suspect]
     Active Substance: NILOTINIB
     Indication: Chronic myeloid leukaemia
     Dosage: 300 MG, BID
     Route: 048
  3. TASIGNA [Suspect]
     Active Substance: NILOTINIB
     Dosage: 150 MG, Q12H (PATIENT RECEIVED TASIGNA OF 200MG, PATIENT PRESCRIBED WITH 150MG EVERY 12 HOURS)
     Route: 065
  4. TASIGNA [Suspect]
     Active Substance: NILOTINIB
     Dosage: 300 MG, Q12H, (2 OF 150 MG) (EVERY 12 HOURS/ IN THE MORNING AND AT NIGHT)
     Route: 048
  5. TASIGNA [Suspect]
     Active Substance: NILOTINIB
     Dosage: 400 MG, QD
     Route: 048
     Dates: start: 202409
  6. TASIGNA [Suspect]
     Active Substance: NILOTINIB
     Dosage: 200 MG, QD
     Route: 048

REACTIONS (8)
  - Platelet count abnormal [Unknown]
  - Drug intolerance [Recovered/Resolved]
  - Gastritis [Recovered/Resolved]
  - Dizziness [Recovering/Resolving]
  - Weight increased [Unknown]
  - Product prescribing error [Unknown]
  - Drug intolerance [Recovered/Resolved]
  - Inappropriate schedule of product administration [Unknown]
